FAERS Safety Report 14330649 (Version 1)
Quarter: 2017Q4

REPORT INFORMATION
  Report Type: Report from Study
  Country: CA (occurrence: CA)
  Receive Date: 20171228
  Receipt Date: 20171228
  Transmission Date: 20180321
  Serious: Yes (Other)
  Sender: FDA-Public Use
  Company Number: CA-HLSUS-2017-CA-001298

PATIENT
  Sex: Male

DRUGS (4)
  1. QUETIAPINE. [Concomitant]
     Active Substance: QUETIAPINE
  2. BENZTROPINE [Concomitant]
     Active Substance: BENZTROPINE
  3. FLUAXOL DEPOT [Concomitant]
  4. CLOZARIL [Suspect]
     Active Substance: CLOZAPINE
     Route: 048
     Dates: start: 20160309, end: 20160401

REACTIONS (1)
  - Psychotic disorder [Unknown]
